FAERS Safety Report 9364540 (Version 2)
Quarter: 2013Q3

REPORT INFORMATION
  Report Type: Spontaneous
  Country: JP (occurrence: JP)
  Receive Date: 20130624
  Receipt Date: 20130703
  Transmission Date: 20140515
  Serious: Yes (Life-Threatening)
  Sender: FDA-Public Use
  Company Number: JP-OTSUKA-JP-2013-12251

PATIENT
  Age: 12 Year
  Sex: Female

DRUGS (3)
  1. BUSULFEX [Suspect]
     Indication: CORD BLOOD TRANSPLANT THERAPY
     Dosage: 8 MG/KG, DAILY DOSE
     Route: 041
  2. FLUDARABINE [Concomitant]
     Indication: CORD BLOOD TRANSPLANT THERAPY
     Route: 041
  3. IMMUNOGLOBULIN ANTI-HUMAN-LYMPHOCYTIC [Concomitant]
     Indication: CORD BLOOD TRANSPLANT THERAPY
     Route: 041

REACTIONS (1)
  - Acute pulmonary oedema [Recovered/Resolved]
